FAERS Safety Report 4654506-0 (Version None)
Quarter: 2005Q2

REPORT INFORMATION
  Report Type: 
  Country: None (occurrence: None)
  Receive Date: 20050505
  Receipt Date: 20050505
  Transmission Date: 20051028
  Serious: Yes (Other)
  Sender: FDA-Public Use
  Company Number: None

PATIENT
  Age: 23 Year
  Sex: Female

DRUGS (2)
  1. TRINESSA [Suspect]
     Indication: DYSMENORRHOEA
  2. ORTHO TRI-CYCLEN [Concomitant]

REACTIONS (3)
  - ACNE [None]
  - PHARMACEUTICAL PRODUCT COMPLAINT [None]
  - SKIN IRRITATION [None]
